FAERS Safety Report 5947434-1 (Version None)
Quarter: 2008Q4

REPORT INFORMATION
  Report Type: 
  Country: None (occurrence: None)
  Receive Date: 20081110
  Receipt Date: 20081028
  Transmission Date: 20090506
  Serious: Yes (Other)
  Sender: FDA-Public Use
  Company Number: PHEH2008US08066

PATIENT
  Sex: Female
  Weight: 53.061 kg

DRUGS (3)
  1. RECLAST [Suspect]
     Indication: OSTEOPOROSIS
     Dosage: 5 MG, YEARLYK
     Dates: start: 20080724
  2. VITAMIN B12 FOR INJECTION [Concomitant]
     Dosage: 1000 MG, UNK
     Route: 030
     Dates: start: 20081020
  3. MULTI-VITAMINS [Suspect]

REACTIONS (14)
  - AMNESIA [None]
  - ANAEMIA [None]
  - ARTHRALGIA [None]
  - ARTHROPATHY [None]
  - BLOOD GLUCOSE INCREASED [None]
  - CONFUSIONAL STATE [None]
  - DEHYDRATION [None]
  - DIARRHOEA [None]
  - INFLUENZA LIKE ILLNESS [None]
  - MOVEMENT DISORDER [None]
  - POLLAKIURIA [None]
  - RENAL FAILURE [None]
  - VERTIGO [None]
  - WEIGHT DECREASED [None]
